FAERS Safety Report 5731758-7 (Version None)
Quarter: 2008Q2

REPORT INFORMATION
  Report Type: 
  Country: None (occurrence: None)
  Receive Date: 20080506
  Receipt Date: 20080506
  Transmission Date: 20081010
  Serious: Yes (Other)
  Sender: FDA-Public Use
  Company Number: None

PATIENT
  Age: 83 Year
  Sex: Male

DRUGS (1)
  1. DIGOXIN-DIGITEK-TABS 0.25 MG AMIDE -BERTEK- [Suspect]
     Indication: CARDIAC DISORDER
     Dosage: ONE DAILY PO OVER 1 MONTH
     Route: 048

REACTIONS (4)
  - HEART RATE INCREASED [None]
  - NAUSEA [None]
  - PHARMACEUTICAL PRODUCT COMPLAINT [None]
  - VISUAL DISTURBANCE [None]
